FAERS Safety Report 25277987 (Version 1)
Quarter: 2025Q2

REPORT INFORMATION
  Report Type: Spontaneous
  Country: US (occurrence: US)
  Receive Date: 20250507
  Receipt Date: 20250507
  Transmission Date: 20250717
  Serious: Yes (Other)
  Sender: SANOFI AVENTIS
  Company Number: US-SA-2025SA128974

PATIENT
  Age: 65 Year
  Sex: Male
  Weight: 85.41 kg

DRUGS (5)
  1. DUPIXENT [Suspect]
     Active Substance: DUPILUMAB
     Indication: Asthma
     Dosage: 300 MG, QOW
     Route: 058
     Dates: start: 20200508
  2. DUPIXENT [Suspect]
     Active Substance: DUPILUMAB
     Route: 058
  3. LIOTHYRONINE SODIUM [Concomitant]
     Active Substance: LIOTHYRONINE SODIUM
  4. SYNTHROID [Concomitant]
     Active Substance: LEVOTHYROXINE SODIUM
  5. NALTREXONE HYDROCHLORIDE [Concomitant]
     Active Substance: NALTREXONE HYDROCHLORIDE

REACTIONS (5)
  - Prostate cancer [Unknown]
  - Infection [Unknown]
  - Musculoskeletal stiffness [Unknown]
  - Off label use [Unknown]
  - Myalgia [Unknown]

NARRATIVE: CASE EVENT DATE: 20200508
